FAERS Safety Report 5827035-6 (Version None)
Quarter: 2008Q3

REPORT INFORMATION
  Report Type: 
  Country: None (occurrence: None)
  Receive Date: 20080730
  Receipt Date: 20080723
  Transmission Date: 20090109
  Serious: Yes (Congenital Anomaly)
  Sender: FDA-Public Use
  Company Number: A0687283A

PATIENT
  Sex: Male
  Weight: 4 kg

DRUGS (2)
  1. PAXIL [Suspect]
     Indication: DEPRESSION
     Dosage: 20MG PER DAY
     Dates: start: 19960101, end: 20060101
  2. VITAMIN TAB [Concomitant]

REACTIONS (4)
  - CONGENITAL HYDRONEPHROSIS [None]
  - DRUG EXPOSURE DURING PREGNANCY [None]
  - RENAL IMPAIRMENT [None]
  - VESICOURETERIC REFLUX [None]
